FAERS Safety Report 6514695-X (Version None)
Quarter: 2009Q4

REPORT INFORMATION
  Report Type: 
  Country: None (occurrence: None)
  Receive Date: 20091222
  Receipt Date: 20091222
  Transmission Date: 20100525
  Serious: Yes (Hospitalization)
  Sender: FDA-Public Use
  Company Number: None

PATIENT
  Age: 86 Year
  Sex: Female
  Weight: 64.09 kg

DRUGS (12)
  1. AGGRENOX [Suspect]
     Indication: CEREBROVASCULAR ACCIDENT
     Dosage: 1 TABLET BID PO  CHRONIC 5 YRS
     Route: 048
  2. APAP TAB [Concomitant]
  3. MENTAX [Concomitant]
  4. HYDROCORTISONE W/ PRAMOXINE [Concomitant]
  5. ARICEPT [Concomitant]
  6. SIMVASTATIN [Concomitant]
  7. NORVASE [Concomitant]
  8. DIOVAN [Concomitant]
  9. SYNTHROID [Concomitant]
  10. FERROUS SULFATE TAB [Concomitant]
  11. NAMENDA [Concomitant]
  12. RISPERIDONE [Concomitant]

REACTIONS (2)
  - ANAEMIA [None]
  - UPPER GASTROINTESTINAL HAEMORRHAGE [None]
